FAERS Safety Report 7603429-3 (Version None)
Quarter: 2011Q3

REPORT INFORMATION
  Report Type: 
  Country: None (occurrence: None)
  Receive Date: 20110712
  Receipt Date: 20110708
  Transmission Date: 20111222
  Serious: Yes (Death, Other)
  Sender: FDA-Public Use
  Company Number: ES-ROXANE LABORATORIES, INC.-2011-RO-00961RO

PATIENT
  Age: 5 Year
  Sex: Male

DRUGS (1)
  1. ONDANSETRON [Suspect]
     Indication: VOMITING
     Dosage: 2 MG
     Route: 060

REACTIONS (5)
  - HYPERTHERMIA MALIGNANT [None]
  - EMBOLISM [None]
  - BRONCHOPNEUMONIA [None]
  - LYMPHADENOPATHY [None]
  - ENTEROVIRUS TEST POSITIVE [None]
